FAERS Safety Report 9479686 (Version 2)
Quarter: 2013Q3

REPORT INFORMATION
  Report Type: Report from Study
  Country: DE (occurrence: DE)
  Receive Date: 20130827
  Receipt Date: 20130903
  Transmission Date: 20140515
  Serious: Yes (Hospitalization, Disabling)
  Sender: FDA-Public Use
  Company Number: DE-ROCHE-1266542

PATIENT
  Sex: Male

DRUGS (1)
  1. RANIBIZUMAB [Suspect]
     Indication: AGE-RELATED MACULAR DEGENERATION
     Route: 050
     Dates: start: 20120803, end: 20120831

REACTIONS (1)
  - Dementia Alzheimer^s type [Not Recovered/Not Resolved]
